FAERS Safety Report 26092864 (Version 1)
Quarter: 2025Q4

REPORT INFORMATION
  Report Type: Report from Study
  Country: US (occurrence: US)
  Receive Date: 20251126
  Receipt Date: 20251126
  Transmission Date: 20260118
  Serious: Yes (Other)
  Sender: ABBVIE
  Company Number: US-ABBVIE-6563324

PATIENT
  Age: 77 Year
  Sex: Male

DRUGS (1)
  1. IMBRUVICA [Suspect]
     Active Substance: IBRUTINIB
     Indication: Product used for unknown indication
     Route: 048
     Dates: start: 20180911, end: 2025

REACTIONS (7)
  - Spinal operation [Unknown]
  - Lymphadenopathy [Unknown]
  - Splenomegaly [Unknown]
  - Hepatomegaly [Unknown]
  - Ulcer [Unknown]
  - Hepatic haemorrhage [Unknown]
  - Splenic haemorrhage [Unknown]

NARRATIVE: CASE EVENT DATE: 20250401
